FAERS Safety Report 9703765 (Version 5)
Quarter: 2013Q4

REPORT INFORMATION
  Report Type: Report from Study
  Country: US (occurrence: US)
  Receive Date: 20131122
  Receipt Date: 20131218
  Transmission Date: 20140711
  Serious: Yes (Life-Threatening, Hospitalization)
  Sender: FDA-Public Use
  Company Number: US-MERCK-1311USA008864

PATIENT
  Age: 48 Year
  Sex: Male
  Weight: 82.8 kg

DRUGS (3)
  1. VORINOSTAT [Suspect]
     Indication: ACUTE MYELOID LEUKAEMIA
     Dosage: 500 MG, TID, ON DAYS 1-3
     Route: 048
     Dates: start: 20131106, end: 20131108
  2. CYTARABINE [Suspect]
     Indication: ACUTE MYELOID LEUKAEMIA
     Dosage: 1500 MG/M2/DAY CONTINUOUS INFUSION ON DAYS 4-7
     Route: 042
     Dates: start: 20131109, end: 20131112
  3. IDARUBICIN [Suspect]
     Indication: ACUTE MYELOID LEUKAEMIA
     Dosage: 12 MG/M2/DAY IV OVER 15 MIN ON DAYS 4-6
     Route: 042
     Dates: start: 20131109, end: 20131111

REACTIONS (2)
  - Febrile neutropenia [Recovered/Resolved with Sequelae]
  - Colitis [Recovered/Resolved with Sequelae]
